FAERS Safety Report 9746193 (Version 3)
Quarter: 2014Q3

REPORT INFORMATION
  Report Type: Spontaneous
  Country: US (occurrence: US)
  Receive Date: 20131211
  Receipt Date: 20140725
  Transmission Date: 20150326
  Serious: Yes (Death)
  Sender: FDA-Public Use
  Company Number: US-LUNDBECK-DKLU1095891

PATIENT
  Sex: Female
  Weight: 14 kg

DRUGS (6)
  1. SABRIL [Suspect]
     Active Substance: VIGABATRIN
  2. SABRIL [Suspect]
     Active Substance: VIGABATRIN
     Route: 048
     Dates: start: 20111017
  3. TOPAMAX [Concomitant]
     Active Substance: TOPIRAMATE
     Indication: PRODUCT USED FOR UNKNOWN INDICATION
  4. DIASTAT [Concomitant]
     Active Substance: DIAZEPAM
     Indication: CONVULSION
     Route: 050
  5. DEPAKOTE [Concomitant]
     Active Substance: DIVALPROEX SODIUM
     Indication: PRODUCT USED FOR UNKNOWN INDICATION
  6. SABRIL [Suspect]
     Active Substance: VIGABATRIN
     Indication: INFANTILE SPASMS
     Route: 048
     Dates: start: 201201

REACTIONS (1)
  - Death [Fatal]

NARRATIVE: CASE EVENT DATE: 2013
